FAERS Safety Report 6438229-3 (Version None)
Quarter: 2009Q4

REPORT INFORMATION
  Report Type: 
  Country: None (occurrence: None)
  Receive Date: 20091112
  Receipt Date: 20091105
  Transmission Date: 20100525
  Serious: Yes (Hospitalization, Other)
  Sender: FDA-Public Use
  Company Number: CHNY2007JP03736

PATIENT
  Sex: Male
  Weight: 59 kg

DRUGS (8)
  1. NICOTINELL TTS (NCH) [Suspect]
     Indication: SMOKING CESSATION THERAPY
     Dosage: 21 MG, QD
     Route: 062
     Dates: start: 20071006, end: 20071018
  2. NICOTINELL TTS (NCH) [Suspect]
     Dosage: 7 MG, 3 PATCHES (TEST)
     Route: 062
     Dates: start: 20071001, end: 20071001
  3. NICOTINELL TTS (NCH) [Suspect]
     Dosage: 14 MG, QD
     Route: 062
     Dates: start: 20071019, end: 20071031
  4. NICOTINELL TTS (NCH) [Suspect]
     Dosage: 7 MG, QD
     Route: 062
     Dates: start: 20071101, end: 20071102
  5. ASPIRIN [Concomitant]
     Indication: LACUNAR INFARCTION
     Dosage: 100 MG, UNK
     Route: 048
     Dates: end: 20071109
  6. NORVASC [Concomitant]
     Indication: HYPERTENSION
     Dosage: 5 MG, UNK
     Route: 048
     Dates: end: 20071109
  7. RENIVACE [Concomitant]
     Indication: HYPERTENSION
     Dosage: 5 MG, UNK
     Route: 048
     Dates: end: 20071109
  8. CARDENALIN [Concomitant]
     Indication: HYPERTENSION
     Dosage: 2 MG, UNK
     Route: 048
     Dates: end: 20071109

REACTIONS (11)
  - ANTIACETYLCHOLINE RECEPTOR ANTIBODY POSITIVE [None]
  - CONCOMITANT DISEASE AGGRAVATED [None]
  - DIPLOPIA [None]
  - DYSPHAGIA [None]
  - EYELID PTOSIS [None]
  - FATIGUE [None]
  - MEDIASTINAL DISORDER [None]
  - MUSCULAR WEAKNESS [None]
  - MYASTHENIA GRAVIS [None]
  - NERVE CONDUCTION STUDIES ABNORMAL [None]
  - STRABISMUS [None]
